FAERS Safety Report 22091796 (Version 2)
Quarter: 2023Q4

REPORT INFORMATION
  Report Type: Report from Study
  Country: US (occurrence: US)
  Receive Date: 20230314
  Receipt Date: 20231009
  Transmission Date: 20240109
  Serious: Yes (Other)
  Sender: FDA-Public Use
  Company Number: US-Merck Healthcare KGaA-9255897

PATIENT
  Age: 65 Year
  Sex: Female

DRUGS (2)
  1. REBIF [Suspect]
     Active Substance: INTERFERON BETA-1A
     Indication: Multiple sclerosis
     Route: 058
     Dates: start: 2005
  2. REBIF [Suspect]
     Active Substance: INTERFERON BETA-1A
     Route: 058
     Dates: start: 2006

REACTIONS (9)
  - Cardiac stress test abnormal [Unknown]
  - Arthritis [Unknown]
  - Back disorder [Unknown]
  - Fall [Unknown]
  - Head injury [Unknown]
  - Pollakiuria [Unknown]
  - Balance disorder [Unknown]
  - Depression [Recovering/Resolving]
  - Product dose omission issue [Unknown]
